FAERS Safety Report 8082642-8 (Version None)
Quarter: 2012Q1

REPORT INFORMATION
  Report Type: 
  Country: None (occurrence: None)
  Receive Date: 20120127
  Receipt Date: 20110222
  Transmission Date: 20120608
  Serious: No
  Sender: FDA-Public Use
  Company Number: US-ABBOTT-11P-163-0707453-00

PATIENT
  Sex: Female
  Weight: 46.762 kg

DRUGS (3)
  1. TOPAMAX [Concomitant]
     Indication: MIGRAINE
  2. HUMIRA [Suspect]
     Indication: PSORIASIS
     Dates: start: 20110212
  3. CELEXA [Concomitant]
     Indication: ANXIETY

REACTIONS (1)
  - INJECTION SITE PAIN [None]
